FAERS Safety Report 19919574 (Version 1)
Quarter: 2021Q4

REPORT INFORMATION
  Report Type: Spontaneous
  Country: BR (occurrence: BR)
  Receive Date: 20211004
  Receipt Date: 20211004
  Transmission Date: 20220303
  Serious: Yes (Hospitalization)
  Sender: FDA-Public Use
  Company Number: 2021A752835

PATIENT
  Sex: Female

DRUGS (1)
  1. SYMBICORT [Suspect]
     Active Substance: BUDESONIDE\FORMOTEROL FUMARATE DIHYDRATE
     Dosage: A DOSE IN THE MORNING AND A DOSE AT NIGHT
     Route: 055

REACTIONS (3)
  - Malaise [Unknown]
  - Intentional product misuse [Unknown]
  - Product administration error [Unknown]
